FAERS Safety Report 15256284 (Version 1)
Quarter: 2018Q3

REPORT INFORMATION
  Report Type: Spontaneous
  Country: DE (occurrence: DE)
  Receive Date: 20180808
  Receipt Date: 20180808
  Transmission Date: 20181010
  Serious: Yes (Other)
  Sender: FDA-Public Use
  Company Number: DE-GLAXOSMITHKLINE-DE2018GSK140852

PATIENT
  Sex: Female

DRUGS (1)
  1. ELONTRIL [Suspect]
     Active Substance: BUPROPION HYDROCHLORIDE
     Indication: PRODUCT USED FOR UNKNOWN INDICATION
     Dosage: UNK

REACTIONS (7)
  - Tension [Not Recovered/Not Resolved]
  - Angina pectoris [Unknown]
  - Sleep disorder [Unknown]
  - Headache [Unknown]
  - Visual impairment [Unknown]
  - Hypoaesthesia [Unknown]
  - Myalgia [Unknown]
